FAERS Safety Report 8564871-X (Version None)
Quarter: 2012Q3

REPORT INFORMATION
  Report Type: 
  Country: None (occurrence: None)
  Receive Date: 20120803
  Receipt Date: 20120629
  Transmission Date: 20120928
  Serious: No
  Sender: FDA-Public Use
  Company Number: US-GLAXOSMITHKLINE-A0982879A

PATIENT
  Age: 58 Year
  Sex: Female

DRUGS (4)
  1. HORIZANT [Suspect]
     Indication: RESTLESS LEGS SYNDROME
     Dosage: 600MG AT NIGHT
     Route: 048
     Dates: start: 20120627
  2. MIRAPEX [Concomitant]
  3. HYDROCHLOROTHIAZIDE [Concomitant]
  4. BENICAR [Concomitant]

REACTIONS (1)
  - DRUG INEFFECTIVE [None]
